FAERS Safety Report 9801424 (Version 1)
Quarter: 2014Q1

REPORT INFORMATION
  Report Type: Spontaneous
  Country: US (occurrence: US)
  Receive Date: 20140107
  Receipt Date: 20140107
  Transmission Date: 20141002
  Serious: No
  Sender: FDA-Public Use
  Company Number: US-TEVA-454769USA

PATIENT
  Age: 19 Year
  Sex: Female
  Weight: 67.65 kg

DRUGS (3)
  1. PARAGARD 380A [Suspect]
     Indication: CONTRACEPTION
     Route: 015
     Dates: start: 20131125
  2. IRON [Concomitant]
     Indication: POSTPARTUM STATE
  3. PRENATAL VITAMINS [Concomitant]
     Indication: POSTPARTUM STATE

REACTIONS (1)
  - Device expulsion [Not Recovered/Not Resolved]
